FAERS Safety Report 25336215 (Version 1)
Quarter: 2025Q2

REPORT INFORMATION
  Report Type: Spontaneous
  Country: US (occurrence: US)
  Receive Date: 20250520
  Receipt Date: 20250520
  Transmission Date: 20250717
  Serious: Yes (Hospitalization, Other)
  Sender: NOVO NORDISK
  Company Number: US-NOVOPROD-1430380

PATIENT
  Sex: Female

DRUGS (1)
  1. OZEMPIC [Suspect]
     Active Substance: SEMAGLUTIDE
     Indication: Weight control

REACTIONS (6)
  - Brain injury [Unknown]
  - Pneumonia [Unknown]
  - Tunnel vision [Unknown]
  - Abnormal loss of weight [Unknown]
  - Hypophagia [Unknown]
  - Product use in unapproved indication [Unknown]
